FAERS Safety Report 26191914 (Version 1)
Quarter: 2025Q4

REPORT INFORMATION
  Report Type: Spontaneous
  Country: US (occurrence: US)
  Receive Date: 20251223
  Receipt Date: 20251223
  Transmission Date: 20260119
  Serious: No
  Sender: Harrow Health
  Company Number: US-HARROW-HAR-2025-US-01380

PATIENT
  Age: 76 Year
  Sex: Female

DRUGS (2)
  1. VEVYE [Suspect]
     Active Substance: CYCLOSPORINE
  2. VEVYE [Suspect]
     Active Substance: CYCLOSPORINE
     Dates: start: 20240728

REACTIONS (4)
  - Drug ineffective [Unknown]
  - Eye pain [Unknown]
  - Headache [Unknown]
  - Ocular discomfort [Unknown]

NARRATIVE: CASE EVENT DATE: 20240728
